FAERS Safety Report 15196650 (Version 1)
Quarter: 2018Q3

REPORT INFORMATION
  Report Type: Spontaneous
  Country: US (occurrence: US)
  Receive Date: 20180725
  Receipt Date: 20180725
  Transmission Date: 20181010
  Serious: Yes (Other)
  Sender: FDA-Public Use
  Company Number: US-TEVA-2018-US-932389

PATIENT
  Sex: Female

DRUGS (1)
  1. ALPRAZOLAM ACTAVIS [Suspect]
     Active Substance: ALPRAZOLAM
     Route: 065

REACTIONS (4)
  - Heart rate increased [Unknown]
  - Pharyngeal oedema [Unknown]
  - Dysphagia [Unknown]
  - Hypertension [Unknown]
